FAERS Safety Report 10428432 (Version 1)
Quarter: 2014Q3

REPORT INFORMATION
  Report Type: Spontaneous
  Country: US (occurrence: None)
  Receive Date: 20140829
  Receipt Date: 20140829
  Transmission Date: 20150326
  Serious: Yes (Other)
  Sender: FDA-Public Use
  Company Number: 2014-US-010457

PATIENT
  Age: 35 Year
  Sex: Male

DRUGS (1)
  1. XYREM [Suspect]
     Active Substance: SODIUM OXYBATE
     Indication: NARCOLEPSY
     Route: 048
     Dates: start: 201004, end: 201005

REACTIONS (4)
  - Abdominal pain upper [None]
  - Gallbladder disorder [None]
  - Dizziness [None]
  - Nausea [None]
